FAERS Safety Report 5422229-6 (Version None)
Quarter: 2007Q3

REPORT INFORMATION
  Report Type: 
  Country: None (occurrence: None)
  Receive Date: 20070820
  Receipt Date: 20070820
  Transmission Date: 20080115
  Serious: Yes (Other)
  Sender: FDA-Public Use
  Company Number: None

PATIENT
  Sex: Male
  Weight: 90.1 kg

DRUGS (1)
  1. AMBISOME [Suspect]
     Indication: PNEUMONIA
     Dosage: 350 MG DAILY IV
     Route: 042
     Dates: start: 20070112, end: 20070118

REACTIONS (1)
  - RENAL FAILURE [None]
